FAERS Safety Report 4429742-9 (Version None)
Quarter: 2004Q3

REPORT INFORMATION
  Report Type: 
  Country: None (occurrence: None)
  Receive Date: 20040816
  Receipt Date: 20040804
  Transmission Date: 20050211
  Serious: Yes (Life-Threatening, Hospitalization, Disabling)
  Sender: FDA-Public Use
  Company Number: STA-AE-04-MTX-344

PATIENT
  Sex: Female

DRUGS (3)
  1. METHOTREXATE [Suspect]
     Indication: ARTHRITIS
     Dosage: 5MG 2 X PER 1 DAY, ORAL
     Route: 048
     Dates: start: 19990101, end: 20040709
  2. ROFECOXIB [Suspect]
     Indication: ARTHRITIS
     Dosage: 12.5 MG 1 X PER 1 DAY, ORAL
     Route: 048
     Dates: start: 20030701, end: 20040709
  3. FOLIC ACID [Concomitant]

REACTIONS (8)
  - ANOREXIA [None]
  - BALANCE DISORDER [None]
  - DIZZINESS [None]
  - DRUG INTERACTION [None]
  - EPISTAXIS [None]
  - FEELING ABNORMAL [None]
  - LOSS OF CONSCIOUSNESS [None]
  - THERAPEUTIC AGENT TOXICITY [None]
